FAERS Safety Report 22174134 (Version 1)
Quarter: 2023Q2

REPORT INFORMATION
  Report Type: Spontaneous
  Country: IT (occurrence: IT)
  Receive Date: 20230405
  Receipt Date: 20230405
  Transmission Date: 20230722
  Serious: Yes (Other)
  Sender: FDA-Public Use
  Company Number: IT-MOLTENI-2023ML000106

PATIENT
  Age: 30 Year
  Sex: Female

DRUGS (5)
  1. RISPERDAL [Suspect]
     Active Substance: RISPERIDONE
     Indication: Product used for unknown indication
     Route: 065
  2. METHADONE HYDROCHLORIDE [Suspect]
     Active Substance: METHADONE HYDROCHLORIDE
     Indication: Drug dependence
     Dosage: 10 MG
     Route: 048
     Dates: start: 20230227
  3. VALPROATE SODIUM [Suspect]
     Active Substance: VALPROATE SODIUM
     Indication: Product used for unknown indication
     Dosage: MORNING AND EVENING
     Route: 065
  4. EN [Suspect]
     Active Substance: DELORAZEPAM
     Indication: Product used for unknown indication
     Dosage: IN THE MORNING AND AFTRENOON
     Route: 065
  5. EN [Suspect]
     Active Substance: DELORAZEPAM
     Dosage: IN THE EVENEING
     Route: 065

REACTIONS (4)
  - Labelled drug-drug interaction issue [Recovered/Resolved]
  - Presyncope [Recovered/Resolved]
  - Sopor [Recovered/Resolved]
  - Vomiting [Recovered/Resolved]

NARRATIVE: CASE EVENT DATE: 20230227
